FAERS Safety Report 15654495 (Version 6)
Quarter: 2019Q4

REPORT INFORMATION
  Report Type: Report from Study
  Country: None (occurrence: US)
  Receive Date: 20181126
  Receipt Date: 20191001
  Transmission Date: 20200122
  Serious: Yes (Other)
  Sender: FDA-Public Use
  Company Number: US-ABBVIE-18K-163-2564424-00

PATIENT
  Sex: Female
  Weight: 52.21 kg

DRUGS (7)
  1. CARDURA [Concomitant]
     Active Substance: DOXAZOSIN MESYLATE
     Indication: HYPERTENSION
  2. HYDROCODONE [Concomitant]
     Active Substance: HYDROCODONE
     Indication: PROCEDURAL PAIN
  3. VITAMIN D [Concomitant]
     Active Substance: VITAMIN D NOS
     Indication: ANAEMIA
  4. HUMIRA [Suspect]
     Active Substance: ADALIMUMAB
     Indication: CROHN^S DISEASE
     Route: 058
     Dates: start: 2014
  5. MERCAPTOPURINE. [Concomitant]
     Active Substance: MERCAPTOPURINE
     Indication: CROHN^S DISEASE
  6. LATANOPROST. [Concomitant]
     Active Substance: LATANOPROST
     Indication: GLAUCOMA
  7. HYDROCODONE [Concomitant]
     Active Substance: HYDROCODONE
     Indication: ARTHRITIS

REACTIONS (15)
  - Hepatic enzyme increased [Unknown]
  - Gastrointestinal pain [Unknown]
  - Nephrolithiasis [Not Recovered/Not Resolved]
  - Calculus bladder [Unknown]
  - Pain [Recovered/Resolved]
  - Cognitive disorder [Unknown]
  - Hernia [Unknown]
  - Nephrolithiasis [Unknown]
  - Weight increased [Unknown]
  - Fatigue [Unknown]
  - Anaemia [Unknown]
  - Large intestinal stenosis [Unknown]
  - Inflammation [Unknown]
  - Food intolerance [Unknown]
  - Crohn^s disease [Unknown]
